FAERS Safety Report 9737195 (Version 4)
Quarter: 2014Q1

REPORT INFORMATION
  Report Type: Report from Study
  Country: DE (occurrence: DE)
  Receive Date: 20131206
  Receipt Date: 20140225
  Transmission Date: 20141002
  Serious: Yes (Death)
  Sender: FDA-Public Use
  Company Number: DE-ROCHE-1304137

PATIENT
  Age: 68 Year
  Sex: Female
  Weight: 56 kg

DRUGS (6)
  1. PERTUZUMAB [Suspect]
     Indication: OVARIAN CANCER
     Dosage: LOADING DOSE ?DATE OF LAST DOSE PRIOR TO SAE: 30/APR/2013
     Route: 042
     Dates: start: 20130424
  2. PERTUZUMAB [Suspect]
     Dosage: MAINTENANCE DOSE
     Route: 042
  3. PACLITAXEL [Suspect]
     Indication: OVARIAN CANCER
     Dosage: DATE OF LAST DOSE PRIOR TO SAE: 07/AUG/2013
     Route: 042
     Dates: start: 20130424
  4. EUTHYROX [Concomitant]
     Route: 065
     Dates: start: 2000
  5. RAMIPRIL [Concomitant]
     Route: 065
     Dates: start: 2005
  6. BISOPROLOL [Concomitant]
     Route: 065
     Dates: start: 2005

REACTIONS (1)
  - Cardiac arrest [Fatal]
